FAERS Safety Report 18318405 (Version 1)
Quarter: 2020Q3

REPORT INFORMATION
  Report Type: Spontaneous
  Country: DK (occurrence: DK)
  Receive Date: 20200928
  Receipt Date: 20200928
  Transmission Date: 20201103
  Serious: Yes (Hospitalization, Disabling)
  Sender: FDA-Public Use
  Company Number: DK-SAMSUNG BIOEPIS-SB-2020-29400

PATIENT
  Age: 35 Year
  Sex: Female

DRUGS (5)
  1. IMRALDI [Suspect]
     Active Substance: ADALIMUMAB
     Indication: CROHN^S DISEASE
     Dosage: STRENGTH: 40MG
     Route: 058
     Dates: start: 201903, end: 20190506
  2. HUMIRA [Suspect]
     Active Substance: ADALIMUMAB
     Indication: CROHN^S DISEASE
     Dosage: STRENGTH: 40MG/0,4ML
     Dates: start: 20150224, end: 201512
  3. ENTYVIO [Concomitant]
     Active Substance: VEDOLIZUMAB
     Indication: CROHN^S DISEASE
     Dosage: STRENGTH: 300 MG
     Route: 042
     Dates: start: 2017
  4. HUMIRA [Suspect]
     Active Substance: ADALIMUMAB
     Indication: CROHN^S DISEASE
     Dosage: STRENGTH: 40MG/0,4ML?PAUSED IN JANUARY TO MARCH 2017 AND IN SUMMER 2017
     Route: 058
     Dates: start: 201512, end: 2017
  5. HUMIRA [Suspect]
     Active Substance: ADALIMUMAB
     Indication: CROHN^S DISEASE
     Dosage: STRENGTH: 40MG/0,4ML?DOSAGE: VARIATION IN INTERVAL 1?2 WEEKS BETWEEN TREATMENT.
     Dates: start: 201709, end: 201903

REACTIONS (1)
  - Tubulointerstitial nephritis [Not Recovered/Not Resolved]

NARRATIVE: CASE EVENT DATE: 20190506
